FAERS Safety Report 4702843-3 (Version None)
Quarter: 2005Q2

REPORT INFORMATION
  Report Type: 
  Country: None (occurrence: None)
  Receive Date: 20050629
  Receipt Date: 20050325
  Transmission Date: 20051028
  Serious: Yes (Hospitalization, Disabling)
  Sender: FDA-Public Use
  Company Number: US-MERCK-0503USA05026

PATIENT
  Age: 56 Year
  Sex: Male
  Weight: 100 kg

DRUGS (10)
  1. VIOXX [Suspect]
     Indication: BACK PAIN
     Route: 048
     Dates: start: 19990101, end: 20000321
  2. VIOXX [Suspect]
     Route: 048
     Dates: start: 20000322, end: 20040810
  3. VIOXX [Suspect]
     Indication: ARTHRALGIA
     Route: 048
     Dates: start: 19990101, end: 20000321
  4. VIOXX [Suspect]
     Route: 048
     Dates: start: 20000322, end: 20040810
  5. COZAAR [Concomitant]
     Indication: HYPERTENSION
     Route: 065
  6. PROTONIX [Concomitant]
     Route: 065
  7. ZOCOR [Concomitant]
     Indication: BLOOD CHOLESTEROL INCREASED
     Route: 065
  8. DYAZIDE [Concomitant]
     Indication: HYPERTENSION
     Route: 065
  9. VALIUM [Concomitant]
     Indication: ANXIETY
     Route: 065
  10. TENORETIC 100 [Concomitant]
     Indication: HYPERTENSION
     Route: 065
     Dates: start: 19950101, end: 20030101

REACTIONS (17)
  - ANGINA UNSTABLE [None]
  - ARTERIAL STENOSIS [None]
  - ARTHROPATHY [None]
  - CHEST PAIN [None]
  - CORONARY ARTERY DISEASE [None]
  - CORONARY ARTERY STENOSIS [None]
  - GASTROENTERITIS RADIATION [None]
  - HAEMANGIOMA [None]
  - HEADACHE [None]
  - HIATUS HERNIA [None]
  - IRRITABLE BOWEL SYNDROME [None]
  - MYOCARDIAL INFARCTION [None]
  - NAUSEA [None]
  - PROSTATE CANCER [None]
  - SCROTAL PAIN [None]
  - STOMACH DISCOMFORT [None]
  - VOCAL CORD DISORDER [None]
